FAERS Safety Report 24419937 (Version 1)
Quarter: 2024Q4

REPORT INFORMATION
  Report Type: Spontaneous
  Country: US (occurrence: US)
  Receive Date: 20241010
  Receipt Date: 20241010
  Transmission Date: 20250115
  Serious: Yes (Hospitalization)
  Sender: INDOCO
  Company Number: US-INDOCO-IND-2024-US-LIT-00207

PATIENT
  Age: 59 Year
  Sex: Male

DRUGS (4)
  1. APIXABAN [Suspect]
     Active Substance: APIXABAN
     Indication: Anticoagulant therapy
     Route: 065
  2. ASPIRIN [Suspect]
     Active Substance: ASPIRIN
     Indication: Ischaemic stroke
     Route: 065
  3. ENOXAPARIN [Suspect]
     Active Substance: ENOXAPARIN
     Indication: Thrombosis prophylaxis
     Route: 065
  4. ROSUVASTATIN [Concomitant]
     Active Substance: ROSUVASTATIN
     Indication: Hyperlipidaemia
     Route: 065

REACTIONS (3)
  - Atrial fibrillation [Recovering/Resolving]
  - Cerebral haemorrhage [Recovering/Resolving]
  - Subarachnoid haemorrhage [Recovering/Resolving]
